FAERS Safety Report 11907526 (Version 3)
Quarter: 2016Q1

REPORT INFORMATION
  Report Type: Report from Study
  Country: NL (occurrence: NL)
  Receive Date: 20160111
  Receipt Date: 20160229
  Transmission Date: 20160526
  Serious: Yes (Other)
  Sender: FDA-Public Use
  Company Number: NL-BAYER-2016-004197

PATIENT
  Age: 0 Year
  Sex: Male

DRUGS (1)
  1. BETAFERON [Suspect]
     Active Substance: INTERFERON BETA-1B

REACTIONS (7)
  - Infection [None]
  - Conduction disorder [Recovered/Resolved]
  - Red blood cell sedimentation rate increased [None]
  - Heart rate irregular [Recovered/Resolved]
  - Dyspnoea [None]
  - Electrocardiogram QT interval abnormal [Recovered/Resolved]
  - Apathy [None]

NARRATIVE: CASE EVENT DATE: 2015
